FAERS Safety Report 24430179 (Version 6)
Quarter: 2025Q2

REPORT INFORMATION
  Report Type: Report from Study
  Country: US (occurrence: US)
  Receive Date: 20241013
  Receipt Date: 20250624
  Transmission Date: 20250716
  Serious: Yes (Hospitalization, Other)
  Sender: JAZZ
  Company Number: US-JAZZ PHARMACEUTICALS-2024-US-017605

PATIENT
  Age: 50 Year
  Sex: Female

DRUGS (9)
  1. SODIUM OXYBATE [Suspect]
     Active Substance: SODIUM OXYBATE
     Indication: Narcolepsy
     Dosage: 4.5 GRAM, BID
     Route: 048
     Dates: end: 20250528
  2. SODIUM OXYBATE [Suspect]
     Active Substance: SODIUM OXYBATE
     Indication: Cataplexy
  3. SODIUM OXYBATE [Suspect]
     Active Substance: SODIUM OXYBATE
     Indication: Somnolence
  4. METOPROLOL TARTRATE [Concomitant]
     Active Substance: METOPROLOL TARTRATE
     Indication: Product used for unknown indication
     Dates: start: 20170301
  5. COREG [Concomitant]
     Active Substance: CARVEDILOL
     Indication: Hypertension
     Dates: start: 20240929
  6. ENOXAPARIN [Concomitant]
     Active Substance: ENOXAPARIN
     Indication: Hypertension
     Dates: start: 20240929
  7. TIZANIDINE [Concomitant]
     Active Substance: TIZANIDINE
     Indication: Product used for unknown indication
  8. ALCOHOL [Concomitant]
     Active Substance: ALCOHOL
     Indication: Product used for unknown indication
  9. GABAPENTIN [Concomitant]
     Active Substance: GABAPENTIN
     Indication: Product used for unknown indication

REACTIONS (7)
  - Encephalopathy [Unknown]
  - Hospitalisation [Unknown]
  - Haemorrhagic stroke [Unknown]
  - Psychotic disorder [Unknown]
  - Seizure [Unknown]
  - Drug hypersensitivity [Unknown]
  - Product administration interrupted [Unknown]

NARRATIVE: CASE EVENT DATE: 20240901
